FAERS Safety Report 8812165 (Version 3)
Quarter: 2012Q4

REPORT INFORMATION
  Report Type: 
  Country: FI (occurrence: FI)
  Receive Date: 20120927
  Receipt Date: 20121114
  Transmission Date: 20130627
  Serious: Yes (Hospitalization, Other)
  Sender: FDA-Public Use
  Company Number: FI-ELI_LILLY_AND_COMPANY-FI201209004893

PATIENT
  Age: 73 Year
  Sex: Female

DRUGS (8)
  1. FORSTEO [Suspect]
     Indication: OSTEOPOROSIS
     Dosage: 20 ug, qd
     Route: 058
     Dates: start: 20110630
  2. ORLOC [Concomitant]
     Indication: HYPERTENSION
     Dosage: UNK
  3. PANADOL [Concomitant]
     Indication: PAIN
     Dosage: UNK
  4. LINATIL [Concomitant]
     Indication: HYPERTENSION
     Dosage: UNK
  5. MIACALCIC [Concomitant]
     Indication: OSTEOPOROSIS
     Dosage: UNK
  6. KALCIPOS-D [Concomitant]
     Indication: MEDICAL DIET
     Dosage: UNK
  7. OXIKLORIN [Concomitant]
     Indication: RHEUMATOID ARTHRITIS
  8. VITAMIN B12 [Concomitant]
     Indication: MEDICAL DIET
     Dosage: UNK

REACTIONS (3)
  - Dehydration [Recovered/Resolved]
  - Vomiting [Recovered/Resolved]
  - Hyponatraemia [Recovered/Resolved]
